FAERS Safety Report 7222075-7 (Version None)
Quarter: 2011Q1

REPORT INFORMATION
  Report Type: 
  Country: None (occurrence: None)
  Receive Date: 20110112
  Receipt Date: 20110104
  Transmission Date: 20110831
  Serious: Yes (Hospitalization)
  Sender: FDA-Public Use
  Company Number: US-JNJFOC-20101006732

PATIENT
  Sex: Male
  Weight: 66.23 kg

DRUGS (7)
  1. PREDNISONE [Concomitant]
     Indication: CROHN'S DISEASE
  2. MERCAPTOPURINE [Concomitant]
     Indication: CROHN'S DISEASE
  3. ZYRTEC [Concomitant]
     Indication: PREMEDICATION
  4. LIALDA [Concomitant]
     Indication: CROHN'S DISEASE
     Dosage: DURATION= } 6 MONTHS
  5. REMICADE [Suspect]
     Indication: CROHN'S DISEASE
     Dosage: SECOND INDUCTION DOSE
     Route: 042
  6. REMICADE [Suspect]
     Dosage: SECOND INDUCTION DOSE
     Route: 042
  7. REMICADE [Suspect]
     Route: 042

REACTIONS (3)
  - SMALL INTESTINAL OBSTRUCTION [None]
  - ILEAL STENOSIS [None]
  - POSTOPERATIVE ABSCESS [None]
